FAERS Safety Report 15108284 (Version 2)
Quarter: 2018Q4

REPORT INFORMATION
  Report Type: Spontaneous
  Country: CA (occurrence: CA)
  Receive Date: 20180705
  Receipt Date: 20181226
  Transmission Date: 20190204
  Serious: Yes (Other)
  Sender: FDA-Public Use
  Company Number: CA-ROCHE-1638670

PATIENT
  Sex: Male

DRUGS (1)
  1. XOLAIR [Suspect]
     Active Substance: OMALIZUMAB
     Indication: CHRONIC SPONTANEOUS URTICARIA
     Route: 058

REACTIONS (5)
  - Urticaria [Unknown]
  - Dyspepsia [Unknown]
  - Pruritus [Unknown]
  - Urticaria thermal [Unknown]
  - Urticaria physical [Unknown]

NARRATIVE: CASE EVENT DATE: 2015
